FAERS Safety Report 8050991-5 (Version None)
Quarter: 2012Q1

REPORT INFORMATION
  Report Type: 
  Country: None (occurrence: None)
  Receive Date: 20120117
  Receipt Date: 20120110
  Transmission Date: 20120608
  Serious: Yes (Death)
  Sender: FDA-Public Use
  Company Number: PHHY2012DE002277

PATIENT
  Sex: Male
  Weight: 94 kg

DRUGS (2)
  1. ZOMETA [Suspect]
     Indication: METASTASES TO BONE
     Dosage: 4 MG, UNK
     Route: 042
     Dates: start: 20110607, end: 20111206
  2. DOCETAXEL [Concomitant]
     Dosage: 150 MG, UNK
     Dates: start: 20110621, end: 20111018

REACTIONS (1)
  - TUMOUR PAIN [None]
